FAERS Safety Report 7780222-2 (Version None)
Quarter: 2011Q3

REPORT INFORMATION
  Report Type: 
  Country: None (occurrence: None)
  Receive Date: 20110927
  Receipt Date: 20110603
  Transmission Date: 20111222
  Serious: No
  Sender: FDA-Public Use
  Company Number: US-ASTRAZENECA-2011SE34438

PATIENT
  Age: 18587 Day
  Sex: Male

DRUGS (5)
  1. SEROQUEL XR [Suspect]
     Route: 048
  2. SOMA [Concomitant]
  3. NEURONTIN [Concomitant]
  4. SEROQUEL XR [Suspect]
     Indication: BIPOLAR I DISORDER
     Route: 048
  5. RESTORIL [Concomitant]

REACTIONS (4)
  - OFF LABEL USE [None]
  - DRUG DOSE OMISSION [None]
  - MUSCLE TIGHTNESS [None]
  - HEADACHE [None]
